FAERS Safety Report 7726551-X (Version None)
Quarter: 2011Q3

REPORT INFORMATION
  Report Type: 
  Country: None (occurrence: None)
  Receive Date: 20110902
  Receipt Date: 20110825
  Transmission Date: 20111222
  Serious: Yes (Hospitalization)
  Sender: FDA-Public Use
  Company Number: FR-VERTEX PHARMACEUTICALS INC.-AE-2011-001234

PATIENT
  Sex: Female
  Weight: 70 kg

DRUGS (9)
  1. NICARDIPINE HCL [Concomitant]
     Indication: HYPERTENSION
  2. TENORETIC 100 [Concomitant]
     Indication: HYPERTENSION
  3. SITAGLIPTIN PHOSPHATE [Concomitant]
     Indication: GLUCOSE TOLERANCE IMPAIRED
  4. PEGASYS [Concomitant]
     Indication: HEPATITIS C
     Route: 058
     Dates: start: 20110629
  5. VX-950 [Suspect]
     Indication: HEPATITIS C
     Route: 048
     Dates: start: 20110629, end: 20110824
  6. COPEGUS [Concomitant]
     Indication: HEPATITIS C
     Route: 048
     Dates: start: 20110629
  7. IMOVANE [Concomitant]
     Indication: SLEEP DISORDER
  8. ATENOLOL [Concomitant]
     Indication: HYPERTENSION
  9. PAROXETINE HCL [Concomitant]
     Indication: ANXIETY

REACTIONS (2)
  - GENERAL PHYSICAL HEALTH DETERIORATION [None]
  - RASH [None]
